FAERS Safety Report 13964666 (Version 2)
Quarter: 2017Q4

REPORT INFORMATION
  Report Type: Spontaneous
  Country: US (occurrence: US)
  Receive Date: 20170913
  Receipt Date: 20171121
  Transmission Date: 20180320
  Serious: No
  Sender: FDA-Public Use
  Company Number: US-JNJFOC-20170807001

PATIENT
  Age: 54 Year
  Sex: Male

DRUGS (1)
  1. SIMPONI [Suspect]
     Active Substance: GOLIMUMAB
     Indication: ANKYLOSING SPONDYLITIS
     Route: 058
     Dates: start: 201608

REACTIONS (4)
  - Drug dose omission [Unknown]
  - Accidental exposure to product [Unknown]
  - Device malfunction [Unknown]
  - Product leakage [Unknown]

NARRATIVE: CASE EVENT DATE: 20170805
